FAERS Safety Report 9271685 (Version 2)
Quarter: 2013Q3

REPORT INFORMATION
  Report Type: Spontaneous
  Country: US (occurrence: US)
  Receive Date: 20130506
  Receipt Date: 20130724
  Transmission Date: 20140515
  Serious: Yes (Other)
  Sender: FDA-Public Use
  Company Number: US-BRISTOL-MYERS SQUIBB COMPANY-18838862

PATIENT
  Age: 50 Year
  Sex: Female
  Weight: 72.56 kg

DRUGS (11)
  1. KOMBIGLYZE XR [Suspect]
  2. FUROSEMIDE [Concomitant]
     Indication: JOINT SWELLING
  3. GABAPENTIN [Concomitant]
     Dosage: EVERY EVENING
  4. IBUPROFEN [Concomitant]
  5. HYDROCODONE + ACETAMINOPHEN [Concomitant]
     Dosage: 5MG/325MG
  6. FLEXERIL [Concomitant]
  7. NAPROXEN [Concomitant]
  8. CILOSTAZOL [Concomitant]
     Dosage: EVERY EVENING
  9. KLOR-CON [Concomitant]
     Dosage: TABLET
  10. CLARITIN [Concomitant]
  11. MICARDIS HCT [Concomitant]
     Dosage: 40MG/12.5MG

REACTIONS (2)
  - Road traffic accident [Unknown]
  - Neck injury [Unknown]
